FAERS Safety Report 4944549-1 (Version None)
Quarter: 2006Q1

REPORT INFORMATION
  Report Type: 
  Country: None (occurrence: None)
  Receive Date: 20060113
  Receipt Date: 20041228
  Transmission Date: 20060701
  Serious: Yes (Other)
  Sender: FDA-Public Use
  Company Number: HQWYE214917JUL04

PATIENT
  Age: 81 Year
  Sex: Female

DRUGS (6)
  1. PREMPRO [Suspect]
     Indication: HORMONE REPLACEMENT THERAPY
     Dosage: ORAL
     Route: 048
     Dates: start: 19970205
  2. PREMARIN [Suspect]
     Indication: MENSTRUATION IRREGULAR
     Dates: start: 19750131
  3. PREMARIN [Suspect]
     Indication: PROPHYLAXIS
     Dates: start: 19750131
  4. PROVERA [Suspect]
     Indication: MENSTRUATION IRREGULAR
     Dosage: ORAL
     Route: 048
     Dates: end: 19900101
  5. PROVERA [Suspect]
     Indication: PROPHYLAXIS
     Dosage: ORAL
     Route: 048
     Dates: end: 19900101
  6. SYNTHROID [Concomitant]

REACTIONS (1)
  - BREAST CANCER [None]
